FAERS Safety Report 4704464-5 (Version None)
Quarter: 2005Q2

REPORT INFORMATION
  Report Type: 
  Country: None (occurrence: None)
  Receive Date: 20050628
  Receipt Date: 20050614
  Transmission Date: 20051028
  Serious: Yes (Death, Hospitalization)
  Sender: FDA-Public Use
  Company Number: GBT050302022

PATIENT
  Age: 51 Year
  Sex: Male
  Weight: 60 kg

DRUGS (12)
  1. ALIMTA [Suspect]
     Indication: NON-SMALL CELL LUNG CANCER
     Dosage: 1500 MG/1 OTHER
     Route: 050
     Dates: start: 20050310
  2. VITAMIN B-12 [Concomitant]
  3. FOLIC ACID [Concomitant]
  4. DEXAMETHASONE [Concomitant]
  5. TRANEXAMIC ACID [Concomitant]
  6. MEGACE [Concomitant]
  7. ACETAMINOPHEN [Concomitant]
  8. GABAPENTIN [Concomitant]
  9. OXYCONTIN [Concomitant]
  10. FLUCONAZOLE [Concomitant]
  11. CITALOPRAM [Concomitant]
  12. DOCUSATE [Concomitant]

REACTIONS (23)
  - ANAEMIA [None]
  - CONDITION AGGRAVATED [None]
  - DYSPNOEA [None]
  - FALL [None]
  - GASTRIC PH DECREASED [None]
  - INFECTION [None]
  - INSOMNIA [None]
  - LUNG CONSOLIDATION [None]
  - LYMPHOCYTE COUNT DECREASED [None]
  - METASTASES TO CENTRAL NERVOUS SYSTEM [None]
  - METASTASES TO SPLEEN [None]
  - MONOCYTE COUNT INCREASED [None]
  - NEOPLASM PROGRESSION [None]
  - NEUROPATHIC PAIN [None]
  - NEUTROPHIL COUNT DECREASED [None]
  - NON-SMALL CELL LUNG CANCER [None]
  - ORAL PAIN [None]
  - PAIN IN JAW [None]
  - PLATELET COUNT DECREASED [None]
  - PLATELET COUNT INCREASED [None]
  - RED BLOOD CELL SEDIMENTATION RATE INCREASED [None]
  - SOMNOLENCE [None]
  - WHITE BLOOD CELL COUNT INCREASED [None]
